FAERS Safety Report 21600939 (Version 1)
Quarter: 2022Q4

REPORT INFORMATION
  Report Type: Spontaneous
  Country: DE (occurrence: DE)
  Receive Date: 20221116
  Receipt Date: 20221116
  Transmission Date: 20230113
  Serious: Yes (Hospitalization, Other)
  Sender: FDA-Public Use
  Company Number: DE-ARIS GLOBAL-BLL202209-000162

PATIENT
  Age: 60 Year
  Sex: Female
  Weight: 60 kg

DRUGS (3)
  1. OLANZAPINE [Suspect]
     Active Substance: OLANZAPINE
     Indication: Anxiety
     Dosage: 15 MG, QD (PATIENT STOPPED TAKING IT IN JANUARY 2022)
     Route: 065
     Dates: start: 2021, end: 202201
  2. PAROXETINE [Suspect]
     Active Substance: PAROXETINE
     Indication: Product used for unknown indication
     Dosage: UNK (VARYING DOSES OF PAROXETINE OVER 18 YEARS, UP TO 40MG DAILY/ABRUPT END OF INTAKE IN MAY/2022)
     Route: 065
     Dates: end: 202205
  3. BISOPROLOL [Concomitant]
     Active Substance: BISOPROLOL
     Indication: Hypertension
     Dosage: 5 MG (BISOPROLOL 5 MG (1-0-0, INTAKE FOR DECADES DUE TO HYPERTENSION, VARYING MAHS))
     Route: 065

REACTIONS (7)
  - Weight decreased [Recovered/Resolved]
  - Neuralgia [Not Recovered/Not Resolved]
  - Paralysis [Recovered/Resolved]
  - Nerve injury [Recovered/Resolved]
  - Fatigue [Recovering/Resolving]
  - Urinary incontinence [Recovered/Resolved]
  - Asthenia [Recovering/Resolving]

NARRATIVE: CASE EVENT DATE: 20210101
